FAERS Safety Report 21599578 (Version 1)
Quarter: 2022Q4

REPORT INFORMATION
  Report Type: Spontaneous
  Country: US (occurrence: US)
  Receive Date: 20221115
  Receipt Date: 20221115
  Transmission Date: 20230113
  Serious: No
  Sender: FDA-Public Use
  Company Number: US-SA-SAC20221109000044

PATIENT

DRUGS (1)
  1. LARONIDASE [Suspect]
     Active Substance: LARONIDASE
     Indication: Mucopolysaccharidosis I
     Dosage: 17.4 UNK, QW
     Route: 042
     Dates: start: 20220815

REACTIONS (1)
  - Poor venous access [Recovering/Resolving]

NARRATIVE: CASE EVENT DATE: 20221031
